FAERS Safety Report 22394633 (Version 1)
Quarter: 2023Q2

REPORT INFORMATION
  Report Type: Spontaneous
  Country: EG (occurrence: EG)
  Receive Date: 20230601
  Receipt Date: 20230601
  Transmission Date: 20230722
  Serious: Yes (Other)
  Sender: FDA-Public Use
  Company Number: EG-SA-SAC20230529000572

PATIENT
  Age: 45 Year
  Sex: Female

DRUGS (1)
  1. PRALUENT [Suspect]
     Active Substance: ALIROCUMAB
     Indication: Hypercholesterolaemia
     Dosage: UNK UNK, QOW
     Route: 058
     Dates: start: 20211224

REACTIONS (3)
  - Hyperlipidaemia [Recovered/Resolved]
  - Respiratory tract congestion [Recovered/Resolved]
  - Nasal dryness [Recovered/Resolved]
